FAERS Safety Report 20460539 (Version 2)
Quarter: 2022Q3

REPORT INFORMATION
  Report Type: Spontaneous
  Country: US (occurrence: None)
  Receive Date: 20220211
  Receipt Date: 20220827
  Transmission Date: 20221027
  Serious: Yes (Other)
  Sender: FDA-Public Use
  Company Number: 2022A062933

PATIENT
  Age: 51 Year
  Sex: Female
  Weight: 103.9 kg

DRUGS (51)
  1. NEXIUM [Suspect]
     Active Substance: ESOMEPRAZOLE MAGNESIUM
     Indication: Gastrooesophageal reflux disease
     Route: 048
     Dates: start: 2007, end: 2009
  2. NEXIUM [Suspect]
     Active Substance: ESOMEPRAZOLE MAGNESIUM
     Indication: Gastrooesophageal reflux disease
     Route: 048
     Dates: start: 2007, end: 2014
  3. NEXIUM 24HR [Suspect]
     Active Substance: ESOMEPRAZOLE MAGNESIUM
     Indication: Gastrooesophageal reflux disease
     Route: 048
     Dates: start: 2007, end: 2009
  4. NEXIUM 24HR [Suspect]
     Active Substance: ESOMEPRAZOLE MAGNESIUM
     Indication: Gastrooesophageal reflux disease
     Route: 048
     Dates: start: 2014, end: 2015
  5. PRILOSEC [Suspect]
     Active Substance: OMEPRAZOLE MAGNESIUM
     Indication: Gastrooesophageal reflux disease
     Route: 048
     Dates: start: 2007, end: 2009
  6. PRILOSEC [Suspect]
     Active Substance: OMEPRAZOLE MAGNESIUM
     Indication: Gastrooesophageal reflux disease
     Dosage: GENERIC
     Route: 065
     Dates: start: 2015
  7. PRILOSEC [Suspect]
     Active Substance: OMEPRAZOLE MAGNESIUM
     Indication: Gastrooesophageal reflux disease
     Route: 048
     Dates: start: 2007, end: 2014
  8. PRILOSEC OTC [Suspect]
     Active Substance: OMEPRAZOLE MAGNESIUM
     Indication: Gastrooesophageal reflux disease
     Route: 048
     Dates: start: 2007, end: 2009
  9. PRILOSEC OTC [Suspect]
     Active Substance: OMEPRAZOLE MAGNESIUM
     Indication: Gastrooesophageal reflux disease
     Dosage: GENERIC
     Route: 065
  10. PRILOSEC OTC [Suspect]
     Active Substance: OMEPRAZOLE MAGNESIUM
     Indication: Gastrooesophageal reflux disease
     Route: 048
     Dates: start: 2007, end: 2015
  11. PROTONIX [Suspect]
     Active Substance: PANTOPRAZOLE SODIUM
     Indication: Gastrooesophageal reflux disease
     Route: 065
  12. PROTONIX [Suspect]
     Active Substance: PANTOPRAZOLE SODIUM
     Indication: Gastrooesophageal reflux disease
     Dosage: GENERIC
     Route: 065
     Dates: start: 2018
  13. PROTONIX [Suspect]
     Active Substance: PANTOPRAZOLE SODIUM
     Indication: Gastrooesophageal reflux disease
     Dosage: GENERIC
     Route: 065
     Dates: start: 2021
  14. ATORVASTATIN [Concomitant]
     Active Substance: ATORVASTATIN
     Indication: Blood cholesterol increased
     Dates: start: 2013
  15. LISINOPRIL [Concomitant]
     Active Substance: LISINOPRIL
     Indication: Hypertension
     Dates: start: 2015
  16. LASIX [Concomitant]
     Active Substance: FUROSEMIDE
     Indication: Oedema
  17. SIMVASTATIN [Concomitant]
     Active Substance: SIMVASTATIN
     Indication: Blood cholesterol increased
     Dates: start: 2012
  18. PLAVIX [Concomitant]
     Active Substance: CLOPIDOGREL BISULFATE
     Indication: Cardiac disorder
     Dates: start: 2011
  19. FUROSEMIDE [Concomitant]
     Active Substance: FUROSEMIDE
     Indication: Fluid retention
     Dates: start: 2010
  20. TYLENOL [Concomitant]
     Active Substance: ACETAMINOPHEN
     Indication: Pain
  21. IBUPROFEN [Concomitant]
     Active Substance: IBUPROFEN
     Indication: Pain
     Dosage: AS NEEDED
  22. FLINTSTONE VITAMIN [Concomitant]
     Dosage: DAILY
  23. DIETARY SUPPLEMENT [Concomitant]
     Active Substance: DIETARY SUPPLEMENT
     Dosage: DAILY
  24. VITAMIN D [Concomitant]
     Active Substance: VITAMIN D NOS
     Dosage: DAILY
  25. CIMETIDINE [Concomitant]
     Active Substance: CIMETIDINE
     Dosage: DAILY
  26. ZANTAC [Concomitant]
     Active Substance: RANITIDINE HYDROCHLORIDE
     Dosage: DAILY
  27. RANITIDINE [Concomitant]
     Active Substance: RANITIDINE
     Dates: start: 2012
  28. MYLANTA [Concomitant]
     Active Substance: ALUMINUM HYDROXIDE\DIMETHICONE\MAGNESIUM HYDROXIDE
     Dates: start: 2004
  29. TUMS [Concomitant]
     Active Substance: CALCIUM CARBONATE
     Dosage: AS NEEDED
     Dates: start: 2004
  30. ROLAIDS [Concomitant]
     Active Substance: CALCIUM CARBONATE\MAGNESIUM HYDROXIDE
     Dosage: AS NEEDED
  31. MILK OF MAGNESIA [Concomitant]
     Active Substance: MAGNESIUM HYDROXIDE
     Dates: start: 2004
  32. CLOMIPRAMINE [Concomitant]
     Active Substance: CLOMIPRAMINE
  33. DIVALPROEX SODIUM [Concomitant]
     Active Substance: DIVALPROEX SODIUM
  34. ATENOLOL [Concomitant]
     Active Substance: ATENOLOL
  35. PROAIR HFA [Concomitant]
     Active Substance: ALBUTEROL SULFATE
  36. COMBIVENT [Concomitant]
     Active Substance: ALBUTEROL SULFATE\IPRATROPIUM BROMIDE
  37. QUETIAPINE [Concomitant]
     Active Substance: QUETIAPINE
  38. CLOPIDOGREL [Concomitant]
     Active Substance: CLOPIDOGREL BISULFATE
  39. LEVOFLOXACIN [Concomitant]
     Active Substance: LEVOFLOXACIN
  40. HYDROCODONE [Concomitant]
     Active Substance: HYDROCODONE
  41. LAMOTRIGINE [Concomitant]
     Active Substance: LAMOTRIGINE
  42. LOXAPINE [Concomitant]
     Active Substance: LOXAPINE
  43. MIRAPEX [Concomitant]
     Active Substance: PRAMIPEXOLE DIHYDROCHLORIDE
  44. LAMICTAL [Concomitant]
     Active Substance: LAMOTRIGINE
  45. SEROQUEL [Concomitant]
     Active Substance: QUETIAPINE FUMARATE
  46. NASONEX [Concomitant]
     Active Substance: MOMETASONE FUROATE
  47. CLONAZEPAM [Concomitant]
     Active Substance: CLONAZEPAM
  48. MAALOX ANTACID [Concomitant]
     Active Substance: ALUMINUM HYDROXIDE\DIMETHICONE\MAGNESIUM HYDROXIDE
  49. LORATADINE [Concomitant]
     Active Substance: LORATADINE
  50. COLACE [Concomitant]
     Active Substance: DOCUSATE SODIUM
  51. GABITRIL [Concomitant]
     Active Substance: TIAGABINE HYDROCHLORIDE

REACTIONS (3)
  - Chronic kidney disease [Not Recovered/Not Resolved]
  - Acute kidney injury [Unknown]
  - Gastrooesophageal reflux disease [Not Recovered/Not Resolved]

NARRATIVE: CASE EVENT DATE: 20150101
